FAERS Safety Report 9401414 (Version 2)
Quarter: 2013Q3

REPORT INFORMATION
  Report Type: Spontaneous
  Country: JP (occurrence: JP)
  Receive Date: 20130715
  Receipt Date: 20130730
  Transmission Date: 20140515
  Serious: Yes (Death, Hospitalization)
  Sender: FDA-Public Use
  Company Number: JP-BAXTER-2013BAX026283

PATIENT
  Age: 78 Year
  Sex: Male
  Weight: 62.4 kg

DRUGS (2)
  1. DIANEAL-N PD-2 1.5 [Suspect]
     Indication: NEPHROSCLEROSIS
     Route: 033
     Dates: start: 20070520, end: 20130627
  2. EXTRANEAL [Suspect]
     Indication: NEPHROSCLEROSIS
     Route: 033
     Dates: start: 20070520, end: 20130627

REACTIONS (2)
  - Myocardial infarction [Fatal]
  - Cerebral infarction [Recovered/Resolved]
